FAERS Safety Report 11489117 (Version 1)
Quarter: 2015Q3

REPORT INFORMATION
  Report Type: Spontaneous
  Country: US (occurrence: US)
  Receive Date: 20150910
  Receipt Date: 20150910
  Transmission Date: 20151125
  Serious: Yes (Hospitalization)
  Sender: FDA-Public Use
  Company Number: PHBS1993US04788

PATIENT
  Age: 13 Year
  Sex: Male
  Weight: 67.7 kg

DRUGS (3)
  1. DESIPRAMINE [Concomitant]
     Active Substance: DESIPRAMINE
     Indication: CONDUCT DISORDER
     Route: 065
  2. LITHIUM. [Suspect]
     Active Substance: LITHIUM
     Indication: CONDUCT DISORDER
     Dosage: 2400 MG, QD
     Route: 065
  3. IMIPRAMINE [Suspect]
     Active Substance: IMIPRAMINE
     Indication: CONDUCT DISORDER
     Dosage: 225 MG, QD
     Route: 065

REACTIONS (16)
  - Cardiotoxicity [Recovered/Resolved]
  - Oedema [Recovered/Resolved]
  - Respiratory distress [Recovered/Resolved]
  - Heart sounds abnormal [Recovered/Resolved]
  - Chest pain [Recovered/Resolved]
  - Hyperhidrosis [Recovered/Resolved]
  - Cardiomegaly [Recovered/Resolved]
  - Pallor [Recovered/Resolved]
  - Rales [Recovered/Resolved]
  - Dyspnoea [Recovered/Resolved]
  - Cardiac failure congestive [Recovered/Resolved]
  - Cardiomyopathy [Recovered/Resolved]
  - Fatigue [Recovered/Resolved]
  - Pulmonary oedema [Recovered/Resolved]
  - Dilatation ventricular [Recovered/Resolved]
  - Mitral valve incompetence [Recovered/Resolved]

NARRATIVE: CASE EVENT DATE: 1992
